FAERS Safety Report 23645772 (Version 1)
Quarter: 2024Q1

REPORT INFORMATION
  Report Type: Spontaneous
  Country: CA (occurrence: CA)
  Receive Date: 20240319
  Receipt Date: 20240319
  Transmission Date: 20240409
  Serious: Yes (Other)
  Sender: FDA-Public Use
  Company Number: None

PATIENT
  Age: 68 Year
  Sex: Male

DRUGS (1)
  1. TRINTELLIX [Suspect]
     Active Substance: VORTIOXETINE HYDROBROMIDE
     Indication: Product used for unknown indication
     Dosage: 10 MILLIGRAM, QD
     Route: 048

REACTIONS (5)
  - Hypoaesthesia oral [Recovering/Resolving]
  - Malaise [Recovering/Resolving]
  - Swollen tongue [Recovering/Resolving]
  - Tongue ulceration [Recovering/Resolving]
  - Vomiting [Recovering/Resolving]
